FAERS Safety Report 8109353-4 (Version None)
Quarter: 2012Q1

REPORT INFORMATION
  Report Type: 
  Country: None (occurrence: None)
  Receive Date: 20120202
  Receipt Date: 20120109
  Transmission Date: 20120608
  Serious: No
  Sender: FDA-Public Use
  Company Number: US-AMGEN-USASP2011045781

PATIENT
  Age: 35 Year
  Sex: Female
  Weight: 83.447 kg

DRUGS (5)
  1. PRENATAL                           /00231801/ [Concomitant]
     Indication: PREGNANCY
     Dosage: 1 X DAILY
     Route: 048
     Dates: start: 20110316
  2. PREDNISONE TAB [Concomitant]
     Indication: INFLAMMATION
     Dosage: 5 MG, 3 X DAILY
     Route: 048
     Dates: start: 20110523
  3. CALCIUM                            /00188401/ [Concomitant]
     Indication: OSTEOPOROSIS PROPHYLAXIS
     Dosage: 600 MG, 2 X DAILY
     Route: 048
     Dates: start: 20110523
  4. VITAMIN D [Concomitant]
     Dosage: 1000 MG, 1 X DAILY
     Route: 048
     Dates: start: 20110523
  5. ENBREL [Suspect]
     Indication: RHEUMATOID ARTHRITIS
     Dosage: 50 MG, QWK
     Route: 058
     Dates: start: 20070731, end: 20110316

REACTIONS (3)
  - MUSCULOSKELETAL PAIN [None]
  - RHEUMATOID ARTHRITIS [None]
  - SINUSITIS [None]
